FAERS Safety Report 5070037-0 (Version None)
Quarter: 2006Q3

REPORT INFORMATION
  Report Type: 
  Country: None (occurrence: None)
  Receive Date: 20060731
  Receipt Date: 20060717
  Transmission Date: 20061208
  Serious: Yes (Hospitalization)
  Sender: FDA-Public Use
  Company Number: 2006089323

PATIENT
  Age: 22 Year
  Sex: Female
  Weight: 44 kg

DRUGS (10)
  1. SUTENT [Suspect]
     Indication: RENAL CELL CARCINOMA STAGE UNSPECIFIED
     Dosage: 50 (50 MG, 1 IN 1 D), ORAL
     Route: 048
     Dates: start: 20050405, end: 20060712
  2. RANITIDINE [Concomitant]
  3. IBUPROFEN [Concomitant]
  4. DIMENHYDRINATE [Concomitant]
  5. MAGIC MOUTHWASH (ALUMINIUM HYDROXIDE, DIPHENHYDRAMINE HYDROCHLORIDE, L [Concomitant]
  6. ALUMINUM HYDROXIDE AND MAGNESIUM TRISILICATE [Concomitant]
  7. RAMIPRIL [Concomitant]
  8. FUROSEMIDE [Concomitant]
  9. LEVOTHYROXINE SODIUM [Concomitant]
  10. EPOETIN ALFA (EPOETIN ALFA) [Concomitant]

REACTIONS (1)
  - PNEUMOTHORAX [None]
